FAERS Safety Report 7079801-X (Version None)
Quarter: 2010Q4

REPORT INFORMATION
  Report Type: 
  Country: None (occurrence: None)
  Receive Date: 20101102
  Receipt Date: 20101021
  Transmission Date: 20110411
  Serious: Yes (Other)
  Sender: FDA-Public Use
  Company Number: AU-PFIZER INC-2010135565

PATIENT
  Sex: Female

DRUGS (1)
  1. LYRICA [Suspect]
     Dosage: 75MG MORNING, 75MG MIDDAY, 150MG AT NIGHT

REACTIONS (2)
  - ABASIA [None]
  - MUSCULAR WEAKNESS [None]
